FAERS Safety Report 16419473 (Version 2)
Quarter: 2019Q4

REPORT INFORMATION
  Report Type: Spontaneous
  Country: CZ (occurrence: CZ)
  Receive Date: 20190612
  Receipt Date: 20191112
  Transmission Date: 20200122
  Serious: Yes (Other)
  Sender: FDA-Public Use
  Company Number: CZ-ROCHE-2330038

PATIENT
  Sex: Male

DRUGS (2)
  1. ZELBORAF [Suspect]
     Active Substance: VEMURAFENIB
     Indication: MALIGNANT MELANOMA
     Route: 048
     Dates: start: 20181003
  2. COTELLIC [Suspect]
     Active Substance: COBIMETINIB
     Indication: MALIGNANT MELANOMA
     Dosage: 20MG PER DAY 1-21 DAY, INTERVAL 28 DAYS
     Route: 048
     Dates: start: 20181003

REACTIONS (5)
  - Scrotal abscess [Unknown]
  - Solar dermatitis [Unknown]
  - Nodule [Unknown]
  - Dermatitis acneiform [Recovering/Resolving]
  - Skin erosion [Unknown]
